FAERS Safety Report 8613091-9 (Version None)
Quarter: 2012Q3

REPORT INFORMATION
  Report Type: 
  Country: None (occurrence: None)
  Receive Date: 20120822
  Receipt Date: 20120711
  Transmission Date: 20120928
  Serious: Yes (Other)
  Sender: FDA-Public Use
  Company Number: US-009507513-2012SP013795

PATIENT

DRUGS (1)
  1. IMPLANON [Suspect]
     Indication: PRODUCT USED FOR UNKNOWN INDICATION
     Dates: start: 20101026

REACTIONS (2)
  - PREGNANCY WITH IMPLANT CONTRACEPTIVE [None]
  - DEVICE FAILURE [None]
